FAERS Safety Report 14173242 (Version 1)
Quarter: 2017Q4

REPORT INFORMATION
  Report Type: Spontaneous
  Country: US (occurrence: US)
  Receive Date: 20171109
  Receipt Date: 20171109
  Transmission Date: 20180321
  Serious: No
  Sender: FDA-Public Use
  Company Number: US-SUN PHARMACEUTICAL INDUSTRIES LTD-2017US-146125

PATIENT
  Sex: Male

DRUGS (1)
  1. PSEUDOEPHEDRINE [Suspect]
     Active Substance: PSEUDOEPHEDRINE
     Indication: EAR INFECTION
     Dosage: 1 DF, SINGLE
     Route: 065
     Dates: start: 20170711, end: 20170711

REACTIONS (5)
  - Drug ineffective for unapproved indication [Unknown]
  - Anxiety [Unknown]
  - Off label use [Unknown]
  - Drug prescribing error [Unknown]
  - Insomnia [Unknown]

NARRATIVE: CASE EVENT DATE: 2017
